FAERS Safety Report 18908438 (Version 1)
Quarter: 2021Q1

REPORT INFORMATION
  Report Type: Spontaneous
  Country: FR (occurrence: FR)
  Receive Date: 20210218
  Receipt Date: 20210218
  Transmission Date: 20210420
  Serious: Yes (Hospitalization)
  Sender: FDA-Public Use
  Company Number: FR-TEVA-2021-FR-1880712

PATIENT
  Age: 45 Year
  Sex: Male
  Weight: 75 kg

DRUGS (7)
  1. LORMETAZEPAM [Suspect]
     Active Substance: LORMETAZEPAM
     Indication: ANXIETY
     Dosage: 2MILLIGRAM
     Route: 048
     Dates: start: 2010
  2. BACLOFENE [Suspect]
     Active Substance: BACLOFEN
     Indication: PRODUCT USED FOR UNKNOWN INDICATION
     Dosage: 3DOSAGEFORM
     Route: 048
     Dates: start: 2010, end: 20180622
  3. AMLOR [Concomitant]
     Active Substance: AMLODIPINE BESYLATE
  4. DIFFU K [Concomitant]
     Active Substance: POTASSIUM CHLORIDE
     Route: 048
  5. ESCITALOPRAM [Suspect]
     Active Substance: ESCITALOPRAM OXALATE
     Indication: DEPRESSION
     Dosage: 20MILLIGRAM
     Route: 048
     Dates: start: 2010
  6. PROCORALAN [Concomitant]
     Active Substance: IVABRADINE
  7. LYRICA [Suspect]
     Active Substance: PREGABALIN
     Indication: HERNIA
     Dosage: 450MILLIGRAM
     Route: 048
     Dates: start: 20101128, end: 20180622

REACTIONS (4)
  - Erectile dysfunction [Not Recovered/Not Resolved]
  - Loss of consciousness [Recovered/Resolved]
  - Memory impairment [Not Recovered/Not Resolved]
  - Hypertension [Not Recovered/Not Resolved]

NARRATIVE: CASE EVENT DATE: 2016
